FAERS Safety Report 14964867 (Version 3)
Quarter: 2018Q2

REPORT INFORMATION
  Report Type: Report from Study
  Country: PA (occurrence: PA)
  Receive Date: 20180601
  Receipt Date: 20180620
  Transmission Date: 20180711
  Serious: Yes (Hospitalization)
  Sender: FDA-Public Use
  Company Number: PHHY2018PA010801

PATIENT
  Age: 65 Year
  Sex: Male

DRUGS (1)
  1. TASIGNA [Suspect]
     Active Substance: NILOTINIB
     Indication: LEUKAEMIA
     Dosage: UNK
     Route: 065

REACTIONS (7)
  - Peripheral coldness [Unknown]
  - Cardiovascular insufficiency [Unknown]
  - Gait disturbance [Unknown]
  - Peripheral swelling [Unknown]
  - Wound [Unknown]
  - Product use in unapproved indication [Unknown]
  - Vein disorder [Unknown]
